FAERS Safety Report 26088688 (Version 1)
Quarter: 2025Q4

REPORT INFORMATION
  Report Type: Spontaneous
  Country: MX (occurrence: MX)
  Receive Date: 20251125
  Receipt Date: 20251125
  Transmission Date: 20260117
  Serious: Yes (Death, Other)
  Sender: SANDOZ
  Company Number: MX-002147023-NVSC2025MX180669

PATIENT
  Age: 80 Year
  Sex: Male

DRUGS (1)
  1. EXELON [Suspect]
     Active Substance: RIVASTIGMINE TARTRATE
     Indication: Dementia Alzheimer^s type
     Dosage: 1 DOSAGE FORM, QD
     Route: 062
     Dates: start: 20250612

REACTIONS (3)
  - Depression [Fatal]
  - Parkinson^s disease [Fatal]
  - Ulcer [Fatal]
